FAERS Safety Report 8050192-0 (Version None)
Quarter: 2012Q1

REPORT INFORMATION
  Report Type: 
  Country: None (occurrence: None)
  Receive Date: 20120117
  Receipt Date: 20120106
  Transmission Date: 20120608
  Serious: Yes (Other)
  Sender: FDA-Public Use
  Company Number: US-JNJFOC-20120102293

PATIENT
  Sex: Female
  Weight: 129.28 kg

DRUGS (9)
  1. REMICADE [Suspect]
     Route: 042
     Dates: start: 20120104
  2. DEXILANT [Concomitant]
     Indication: GASTRIC DISORDER
     Dates: start: 20100101
  3. CLOBEX [Concomitant]
     Indication: PSORIASIS
     Route: 061
     Dates: start: 20110101
  4. DOVONEX [Concomitant]
     Indication: PSORIASIS
     Route: 061
  5. BENADRYL [Suspect]
  6. REMICADE [Suspect]
     Indication: PSORIASIS
     Route: 042
     Dates: start: 20111001, end: 20111201
  7. IMITREX [Concomitant]
     Indication: MIGRAINE
     Route: 055
     Dates: start: 19960101
  8. IMITREX [Concomitant]
     Route: 050
     Dates: start: 19960101
  9. BENADRYL [Suspect]
     Indication: PREMEDICATION
     Dates: start: 20111001

REACTIONS (13)
  - SOMNOLENCE [None]
  - MIGRAINE [None]
  - DIZZINESS [None]
  - NAUSEA [None]
  - FEELING ABNORMAL [None]
  - DISORIENTATION [None]
  - SPEECH DISORDER [None]
  - INFUSION RELATED REACTION [None]
  - RESTLESSNESS [None]
  - DISSOCIATION [None]
  - HEADACHE [None]
  - DRUG INEFFECTIVE [None]
  - IMPAIRED DRIVING ABILITY [None]
